FAERS Safety Report 22596611 (Version 2)
Quarter: 2023Q2

REPORT INFORMATION
  Report Type: Spontaneous
  Country: None (occurrence: GB)
  Receive Date: 20230613
  Receipt Date: 20230614
  Transmission Date: 20230722
  Serious: Yes (Death, Hospitalization)
  Sender: FDA-Public Use
  Company Number: GB-Breckenridge Pharmaceutical, Inc.-2142661

PATIENT
  Age: 65 Year
  Sex: Female

DRUGS (2)
  1. OMEPRAZOLE [Suspect]
     Active Substance: OMEPRAZOLE
  2. FUROSEMIDE [Concomitant]
     Active Substance: FUROSEMIDE

REACTIONS (9)
  - Hyponatraemia [Fatal]
  - Pulmonary embolism [Fatal]
  - Death [Fatal]
  - Abdominal distension [Fatal]
  - Spinal cord compression [Fatal]
  - Vomiting [Fatal]
  - Bowel movement irregularity [Fatal]
  - Intestinal obstruction [Fatal]
  - Cardio-respiratory arrest [Fatal]
